FAERS Safety Report 8317891-4 (Version None)
Quarter: 2012Q2

REPORT INFORMATION
  Report Type: 
  Country: None (occurrence: None)
  Receive Date: 20120427
  Receipt Date: 20120420
  Transmission Date: 20120825
  Serious: Yes (Death, Life-Threatening)
  Sender: FDA-Public Use
  Company Number: JP-PFIZER INC-2011128709

PATIENT
  Age: 66 Year
  Sex: Female
  Weight: 44 kg

DRUGS (11)
  1. BACTRIM [Concomitant]
     Dosage: 2400/480 MG
     Route: 042
     Dates: start: 20110504, end: 20110513
  2. ADENOSINE TRIPHOSPHATE [Concomitant]
     Dosage: 500 MG, UNK
     Route: 042
     Dates: start: 20110604, end: 20110605
  3. MICAFUNGIN SODIUM [Concomitant]
     Dosage: 75 MG, UNK
     Route: 042
     Dates: start: 20110502, end: 20110605
  4. PENTAMIDINE ISETHIONATE [Concomitant]
     Dosage: 150 MG, UNK
     Route: 042
     Dates: start: 20110601, end: 20110604
  5. ARGATROBAN [Suspect]
     Indication: HEPARIN-INDUCED THROMBOCYTOPENIA
     Dosage: 0.7MCG/KG/MIN
     Route: 041
     Dates: start: 20110531, end: 20110603
  6. HEPARIN SODIUM [Concomitant]
     Dosage: UNK
     Route: 051
     Dates: start: 20110504
  7. COTRIM [Concomitant]
     Dosage: 2400/480 MG
     Route: 048
     Dates: start: 20110514, end: 20110531
  8. VANCOMYCIN [Concomitant]
     Dosage: 1.5 G, UNK
     Route: 042
     Dates: start: 20110601, end: 20110605
  9. WARFARIN [Concomitant]
     Dosage: 2 MG, UNK
     Route: 048
     Dates: start: 20110524, end: 20110527
  10. FUTHAN [Concomitant]
     Indication: HEPARIN-INDUCED THROMBOCYTOPENIA
     Dosage: 100 MG, UNK
     Route: 042
     Dates: start: 20110527, end: 20110531
  11. PREDNISOLONE [Concomitant]
     Dosage: 15 TO 30 MG
     Route: 048
     Dates: start: 20110514, end: 20110601

REACTIONS (2)
  - PNEUMONIA [None]
  - PULMONARY ALVEOLAR HAEMORRHAGE [None]
